FAERS Safety Report 7634928-6 (Version None)
Quarter: 2011Q3

REPORT INFORMATION
  Report Type: 
  Country: None (occurrence: None)
  Receive Date: 20110726
  Receipt Date: 20110718
  Transmission Date: 20111222
  Serious: Yes (Other)
  Sender: FDA-Public Use
  Company Number: US-ASTRAZENECA-2009UW17986

PATIENT
  Age: 364 Month
  Sex: Male
  Weight: 91.6 kg

DRUGS (44)
  1. SEROQUEL [Suspect]
     Indication: AFFECTIVE DISORDER
     Dosage: 200 TO 400 MG
     Route: 048
     Dates: start: 20060101, end: 20070101
  2. SEROQUEL [Suspect]
     Route: 048
     Dates: start: 20060601, end: 20061001
  3. REMERON [Concomitant]
  4. VISTARIL [Concomitant]
  5. ASPIRIN [Concomitant]
     Indication: CARDIAC DISORDER
  6. LIPITOR [Concomitant]
     Route: 048
     Dates: start: 20071115
  7. SEROQUEL [Suspect]
     Route: 048
     Dates: start: 20070713, end: 20071026
  8. SEROQUEL [Suspect]
     Route: 048
     Dates: start: 20070810
  9. PAXIL [Concomitant]
     Indication: DEPRESSION
     Route: 048
     Dates: start: 20070413, end: 20070810
  10. LASIX [Concomitant]
     Route: 048
     Dates: start: 20071115
  11. SEROQUEL [Suspect]
     Route: 048
     Dates: start: 20061027, end: 20070713
  12. SEROQUEL [Suspect]
     Route: 048
     Dates: start: 20061027, end: 20070713
  13. SEROQUEL [Suspect]
     Route: 048
     Dates: start: 20071117
  14. SYMBICORT [Concomitant]
  15. SEROQUEL [Suspect]
     Route: 048
     Dates: start: 20060601, end: 20061001
  16. SEROQUEL [Suspect]
     Route: 048
     Dates: start: 20060601, end: 20061001
  17. SEROQUEL [Suspect]
     Route: 048
     Dates: start: 20061027, end: 20070713
  18. SEROQUEL [Suspect]
     Route: 048
     Dates: start: 20071115
  19. XANAX [Concomitant]
     Indication: ANXIETY
     Route: 048
     Dates: start: 20060123, end: 20070413
  20. NEURONTIN [Concomitant]
     Indication: AFFECTIVE DISORDER
     Route: 048
     Dates: start: 20070427, end: 20070713
  21. LEVOTHYROXINE SODIUM [Concomitant]
     Dosage: 0.1
     Dates: start: 20071117
  22. TOPROL-XL [Concomitant]
     Route: 048
     Dates: start: 20071117
  23. MONOPRIL [Concomitant]
     Route: 048
     Dates: start: 20071115
  24. ALBUTEROL SULFATE AUTOHALER [Concomitant]
  25. SEROQUEL [Suspect]
     Indication: ANXIETY
     Dosage: 200 TO 400 MG
     Route: 048
     Dates: start: 20060101, end: 20070101
  26. SEROQUEL [Suspect]
     Route: 048
     Dates: start: 20070713, end: 20071026
  27. SEROQUEL [Suspect]
     Route: 048
     Dates: start: 20070810
  28. SEROQUEL [Suspect]
     Route: 048
     Dates: start: 20071115
  29. EFFEXOR XR [Concomitant]
     Indication: DEPRESSION
     Route: 048
     Dates: end: 20061027
  30. BUSPAR [Concomitant]
     Indication: ANXIETY
     Dates: start: 20070413, end: 20070427
  31. BUSPAR [Concomitant]
     Indication: AFFECTIVE DISORDER
     Dates: start: 20070413, end: 20070427
  32. TRAZODONE HYDROCHLORIDE [Concomitant]
     Indication: INSOMNIA
     Dosage: 1-2 PO QHS
     Route: 048
     Dates: start: 20050812
  33. SINGULAIR [Concomitant]
     Route: 048
     Dates: start: 20071115
  34. LEVOXYL [Concomitant]
     Route: 048
     Dates: start: 20071115
  35. SEROQUEL [Suspect]
     Route: 048
     Dates: start: 20070713, end: 20071026
  36. SEROQUEL [Suspect]
     Route: 048
     Dates: start: 20071115
  37. SEROQUEL [Suspect]
     Route: 048
     Dates: start: 20071117
  38. BUSPAR [Concomitant]
     Indication: ANGER
     Dates: start: 20070413, end: 20070427
  39. SEROQUEL [Suspect]
     Indication: INSOMNIA
     Dosage: 200 TO 400 MG
     Route: 048
     Dates: start: 20060101, end: 20070101
  40. SEROQUEL [Suspect]
     Route: 048
     Dates: start: 20070810
  41. SEROQUEL [Suspect]
     Route: 048
     Dates: start: 20071117
  42. XANAX [Concomitant]
     Dosage: 0.5 MG PO AM 1 MG PO PM
     Route: 048
     Dates: start: 20071115
  43. EFFEXOR XR [Concomitant]
     Route: 048
  44. TOPROL-XL [Concomitant]
     Route: 048
     Dates: start: 20071115

REACTIONS (5)
  - NEUROPATHY PERIPHERAL [None]
  - DIABETES MELLITUS INADEQUATE CONTROL [None]
  - DECUBITUS ULCER [None]
  - DIABETIC NEPHROPATHY [None]
  - TYPE 2 DIABETES MELLITUS [None]
